FAERS Safety Report 6263520-3 (Version None)
Quarter: 2009Q3

REPORT INFORMATION
  Report Type: 
  Country: None (occurrence: None)
  Receive Date: 20090710
  Receipt Date: 20090529
  Transmission Date: 20100115
  Serious: No
  Sender: FDA-Public Use
  Company Number: A0776866A

PATIENT
  Age: 60 Year
  Sex: Female

DRUGS (12)
  1. TYKERB [Suspect]
     Indication: BREAST CANCER
     Dosage: 1000MG PER DAY
     Route: 048
     Dates: start: 20090324, end: 20090415
  2. SYNTHROID [Concomitant]
  3. EFFEXOR [Concomitant]
  4. COMPAZINE [Concomitant]
  5. NEURONTIN [Concomitant]
  6. LORAZEPAM [Concomitant]
  7. OXYCODONE HCL [Concomitant]
  8. NAPROXIN [Concomitant]
  9. VITAMIN D [Concomitant]
  10. ASCORBIC ACID [Concomitant]
  11. MULTI-VITAMIN [Concomitant]
  12. VITAMIN B COMPLEX CAP [Concomitant]

REACTIONS (5)
  - DEHYDRATION [None]
  - DIARRHOEA [None]
  - FATIGUE [None]
  - NAUSEA [None]
  - VOMITING [None]
